FAERS Safety Report 16006054 (Version 1)
Quarter: 2019Q1

REPORT INFORMATION
  Report Type: Spontaneous
  Country: US (occurrence: US)
  Receive Date: 20190226
  Receipt Date: 20190226
  Transmission Date: 20190418
  Serious: Yes (Other)
  Sender: FDA-Public Use
  Company Number: None

PATIENT
  Age: 55 Year
  Sex: Female
  Weight: 65.8 kg

DRUGS (1)
  1. RITUXAN [Suspect]
     Active Substance: RITUXIMAB
     Indication: DIFFUSE LARGE B-CELL LYMPHOMA
     Dosage: ?          OTHER FREQUENCY:Q 2 WEEKS;?
     Route: 042
     Dates: start: 20190110, end: 20190110

REACTIONS (3)
  - Throat irritation [None]
  - Flushing [None]
  - Ear pruritus [None]

NARRATIVE: CASE EVENT DATE: 20190110
